FAERS Safety Report 5757018-6 (Version None)
Quarter: 2008Q2

REPORT INFORMATION
  Report Type: 
  Country: None (occurrence: None)
  Receive Date: 20080603
  Receipt Date: 20080519
  Transmission Date: 20081010
  Serious: Yes (Hospitalization, Congenital Anomaly)
  Sender: FDA-Public Use
  Company Number: A0682785A

PATIENT
  Sex: Female
  Weight: 3.6 kg

DRUGS (4)
  1. PAXIL [Suspect]
     Indication: ANXIETY
     Dosage: 10MG PER DAY
     Dates: start: 19991118
  2. VITAMIN TAB [Concomitant]
  3. TYLENOL [Concomitant]
     Dates: start: 19970101
  4. TYLENOL (CAPLET) [Concomitant]

REACTIONS (27)
  - ABDOMINAL PAIN UPPER [None]
  - AORTIC VALVE INCOMPETENCE [None]
  - ATELECTASIS [None]
  - ATRIAL SEPTAL DEFECT [None]
  - BRADYCARDIA [None]
  - BUNDLE BRANCH BLOCK RIGHT [None]
  - CARDIAC MURMUR [None]
  - CARDIOMEGALY [None]
  - COLLAPSE OF LUNG [None]
  - CONGENITAL ANOMALY [None]
  - CYANOSIS [None]
  - DISSEMINATED INTRAVASCULAR COAGULATION [None]
  - DRUG EXPOSURE DURING PREGNANCY [None]
  - DYSPNOEA [None]
  - EMPHYSEMA [None]
  - FALLOT'S TETRALOGY [None]
  - HAEMATOCHEZIA [None]
  - HYPOXIA [None]
  - JAUNDICE NEONATAL [None]
  - PATENT DUCTUS ARTERIOSUS [None]
  - PLEURAL EFFUSION [None]
  - PULMONARY VALVE INCOMPETENCE [None]
  - PULMONARY VALVE STENOSIS [None]
  - RIGHT VENTRICLE OUTFLOW TRACT OBSTRUCTION [None]
  - RIGHT VENTRICULAR HYPERTROPHY [None]
  - SEPSIS NEONATAL [None]
  - VENTRICULAR SEPTAL DEFECT [None]
